FAERS Safety Report 18544770 (Version 1)
Quarter: 2020Q4

REPORT INFORMATION
  Report Type: Spontaneous
  Country: US (occurrence: US)
  Receive Date: 20201124
  Receipt Date: 20201124
  Transmission Date: 20210114
  Serious: Yes (Other)
  Sender: FDA-Public Use
  Company Number: None

PATIENT
  Age: 44 Year
  Sex: Female
  Weight: 86.4 kg

DRUGS (3)
  1. MONOLAURIN [Concomitant]
  2. VITAMIN D [Concomitant]
     Active Substance: VITAMIN D NOS
  3. DUOBRII [Suspect]
     Active Substance: HALOBETASOL PROPIONATE\TAZAROTENE
     Indication: ECZEMA
     Dosage: ?          OTHER FREQUENCY:EVERY OTHER DAY;?
     Route: 061
     Dates: start: 20201031, end: 20201104

REACTIONS (3)
  - Pustule [None]
  - Pain [None]
  - Hypersensitivity [None]

NARRATIVE: CASE EVENT DATE: 20201104
